FAERS Safety Report 8865755 (Version 1)
Quarter: 2012Q4

REPORT INFORMATION
  Report Type: 
  Country: US (occurrence: US)
  Receive Date: 20121024
  Receipt Date: 20121024
  Transmission Date: 20130627
  Serious: No
  Sender: FDA-Public Use
  Company Number: US-AMGEN-USASP2012003178

PATIENT
  Age: 22 Year
  Sex: Female

DRUGS (4)
  1. ENBREL [Suspect]
     Indication: PRODUCT USED FOR UNKNOWN INDICATION
     Dosage: 50 mg, qwk
     Route: 058
  2. CENTRUM                            /00554501/ [Concomitant]
     Dosage: UNK
  3. VITAMIN D /00107901/ [Concomitant]
     Dosage: UNK
  4. IRON [Concomitant]
     Dosage: 325 mg, UNK

REACTIONS (3)
  - Rhinorrhoea [Unknown]
  - Influenza [Unknown]
  - Nasopharyngitis [Unknown]
